FAERS Safety Report 9481148 (Version 2)
Quarter: 2013Q4

REPORT INFORMATION
  Report Type: Spontaneous
  Country: DO (occurrence: DO)
  Receive Date: 20130828
  Receipt Date: 20131014
  Transmission Date: 20140711
  Serious: Yes (Death, Hospitalization)
  Sender: FDA-Public Use
  Company Number: DO-BIOGENIDEC-2013BI079839

PATIENT
  Age: 22 Year
  Sex: Male

DRUGS (3)
  1. AVONEX [Suspect]
     Indication: MULTIPLE SCLEROSIS
     Route: 030
     Dates: end: 20130814
  2. METICORTEM [Concomitant]
     Dates: start: 201302
  3. CALCIUM [Concomitant]
     Dates: start: 201302

REACTIONS (7)
  - Aspiration [Fatal]
  - Pneumonia [Unknown]
  - Progressive multiple sclerosis [Unknown]
  - Diarrhoea [Recovered/Resolved]
  - Vomiting [Recovered/Resolved]
  - Dehydration [Unknown]
  - Hypophagia [Unknown]
